FAERS Safety Report 6268018-4 (Version None)
Quarter: 2009Q3

REPORT INFORMATION
  Report Type: 
  Country: None (occurrence: None)
  Receive Date: 20090713
  Receipt Date: 20090624
  Transmission Date: 20100115
  Serious: Yes (Hospitalization)
  Sender: FDA-Public Use
  Company Number: JPI-P-007709

PATIENT
  Age: 71 Year
  Sex: Female
  Weight: 50.3493 kg

DRUGS (15)
  1. XYREM [Suspect]
     Indication: CATAPLEXY
     Dosage: 4.5 GM (2.25 GM, 2 IN 1D), ORAL: 7GM (3.5 GM, 2 IN 1D), ORAL
     Route: 048
     Dates: start: 20081112
  2. XYREM [Suspect]
     Indication: CATAPLEXY
     Dosage: 4.5 GM (2.25 GM, 2 IN 1D), ORAL: 7GM (3.5 GM, 2 IN 1D), ORAL
     Route: 048
     Dates: start: 20081201
  3. CARVEDILOL [Concomitant]
  4. PRAMIPEXOLE DIHYDROCHLORIDE [Concomitant]
  5. EZETIMIBE W/SIMVASTATIN [Concomitant]
  6. CLOPIDOGREL [Concomitant]
  7. FUROSEMIDE [Concomitant]
  8. OLMESARTAN MEDOXOMIL [Concomitant]
  9. ESOMEPRAZOLE MAGNESIUM [Concomitant]
  10. LEVOTHYROXINE SODIUM [Concomitant]
  11. DARVOCET [Concomitant]
  12. POTASSIUM CHLORIDE [Concomitant]
  13. ALPRAZOLAM [Concomitant]
  14. MODAFINIL [Concomitant]
  15. OXYGEN [Concomitant]

REACTIONS (5)
  - DEPRESSED LEVEL OF CONSCIOUSNESS [None]
  - FEELING DRUNK [None]
  - HEAD INJURY [None]
  - MESENTERIC OCCLUSION [None]
  - NERVOUSNESS [None]
